FAERS Safety Report 6452707-2 (Version None)
Quarter: 2009Q4

REPORT INFORMATION
  Report Type: 
  Country: None (occurrence: None)
  Receive Date: 20091124
  Receipt Date: 20091112
  Transmission Date: 20100525
  Serious: Yes (Other)
  Sender: FDA-Public Use
  Company Number: PL-JNJFOC-20091104236

PATIENT
  Sex: Male
  Weight: 14 kg

DRUGS (1)
  1. REMICADE [Suspect]
     Indication: CROHN'S DISEASE
     Route: 042
     Dates: start: 20091028, end: 20091028

REACTIONS (3)
  - BLOOD IMMUNOGLOBULIN M INCREASED [None]
  - HEPATOSPLENOMEGALY [None]
  - RASH [None]
